FAERS Safety Report 9960216 (Version 2)
Quarter: 2014Q1

REPORT INFORMATION
  Report Type: Report from Study
  Country: PR (occurrence: PR)
  Receive Date: 20140305
  Receipt Date: 20140305
  Transmission Date: 20141002
  Serious: No
  Sender: FDA-Public Use
  Company Number: PR-ABBVIE-13P-131-1065692-00

PATIENT
  Sex: Male
  Weight: 188.86 kg

DRUGS (10)
  1. HUMIRA [Suspect]
     Indication: PSORIATIC ARTHROPATHY
     Route: 058
     Dates: start: 201303, end: 201304
  2. PSOR-VAL SPRAY [Concomitant]
     Indication: PSORIASIS
     Route: 061
     Dates: start: 201305
  3. T-GEL SHAMPOO [Concomitant]
     Indication: PSORIASIS
     Route: 061
  4. SYNTHROID [Concomitant]
     Indication: THYROID DISORDER
     Route: 048
     Dates: start: 2011
  5. VERAPAMIL [Concomitant]
     Indication: HYPERTENSION
     Route: 048
     Dates: start: 2011
  6. ENALAPRIL [Concomitant]
     Indication: HYPERTENSION
     Route: 048
     Dates: start: 2011
  7. METFORMIN [Concomitant]
     Indication: DIABETES MELLITUS
     Route: 048
     Dates: start: 201302
  8. CELEBREX [Concomitant]
     Indication: ARTHRITIS
     Route: 048
     Dates: start: 201302
  9. TRAMADOL [Concomitant]
     Indication: ARTHRITIS
     Route: 048
     Dates: start: 201302
  10. ZYLOPRIM [Concomitant]
     Indication: BLOOD URIC ACID
     Route: 048
     Dates: start: 201302

REACTIONS (1)
  - Platelet count decreased [Not Recovered/Not Resolved]
